FAERS Safety Report 5082703-1 (Version None)
Quarter: 2006Q3

REPORT INFORMATION
  Report Type: 
  Country: None (occurrence: None)
  Receive Date: 20060817
  Receipt Date: 20060615
  Transmission Date: 20061208
  Serious: Yes (Hospitalization, Other)
  Sender: FDA-Public Use
  Company Number: PHBS2006BE08960

PATIENT
  Age: 83 Year
  Sex: Male
  Weight: 62 kg

DRUGS (5)
  1. DIOVAN [Suspect]
     Indication: HYPERTENSION
     Dosage: 80 MG/DAY
     Route: 048
     Dates: start: 19990809, end: 20010101
  2. DIOVAN [Suspect]
     Dosage: 160 MG/DAY
     Route: 048
     Dates: start: 20010101, end: 20060502
  3. EMCONCOR [Concomitant]
     Dosage: 10 MG, UNK
     Dates: start: 19990101
  4. FLUNITRAZEPAM [Concomitant]
     Dosage: 1 MG, UNK
  5. LISINOPRIL [Concomitant]
     Dosage: 5 MG/DAY
     Dates: start: 20050101

REACTIONS (7)
  - COUGH [None]
  - DYSPNOEA EXERTIONAL [None]
  - GENERAL PHYSICAL HEALTH DETERIORATION [None]
  - HYPOXIA [None]
  - INTERSTITIAL LUNG DISEASE [None]
  - LUNG DISORDER [None]
  - PRODUCTIVE COUGH [None]
